FAERS Safety Report 15645425 (Version 2)
Quarter: 2018Q4

REPORT INFORMATION
  Report Type: Spontaneous
  Country: ZA (occurrence: ZA)
  Receive Date: 20181121
  Receipt Date: 20181129
  Transmission Date: 20190205
  Serious: Yes (Hospitalization)
  Sender: FDA-Public Use
  Company Number: ZA-PFIZER INC-2018473646

PATIENT
  Age: 69 Year
  Sex: Male

DRUGS (7)
  1. ECOTRIN [Suspect]
     Active Substance: ASPIRIN
     Dosage: 81 MG, UNK
  2. ETHIPRAMINE [Suspect]
     Active Substance: IMIPRAMINE HYDROCHLORIDE
     Dosage: 10 MG, UNK
  3. STILPANE [CAFFEINE;CODEINE PHOSPHATE;MEPROBAMATE;PARACETAMOL] [Suspect]
     Active Substance: ACETAMINOPHEN\CAFFEINE\CODEINE PHOSPHATE\MEPROBAMATE
     Dosage: UNK
  4. ASPAVOR [Suspect]
     Active Substance: ATORVASTATIN
     Indication: BLOOD CHOLESTEROL ABNORMAL
     Dosage: 10 MG, UNK
  5. INDAPAMIDE MYLAN [Suspect]
     Active Substance: INDAPAMIDE
     Dosage: 2.5 MG, UNK
  6. GLYCOMIN (GLIBENCLAMIDE) [Suspect]
     Active Substance: GLYBURIDE
     Dosage: 5 MG, UNK
  7. ALAPREN (ENALAPRIL MALEATE) [Suspect]
     Active Substance: ENALAPRIL MALEATE
     Dosage: 20 MG, UNK

REACTIONS (2)
  - Syncope [Recovered/Resolved]
  - Blood glucose increased [Recovered/Resolved]

NARRATIVE: CASE EVENT DATE: 20181024
